FAERS Safety Report 8325585-4 (Version None)
Quarter: 2012Q2

REPORT INFORMATION
  Report Type: 
  Country: None (occurrence: None)
  Receive Date: 20120427
  Receipt Date: 20120423
  Transmission Date: 20120825
  Serious: Yes (Hospitalization, Other)
  Sender: FDA-Public Use
  Company Number: 2011SP057237

PATIENT
  Age: 59 Year
  Sex: Female

DRUGS (10)
  1. HYDROCHLOROTHIAZIDE [Concomitant]
  2. PEG-INTRON [Suspect]
     Indication: PRODUCT USED FOR UNKNOWN INDICATION
  3. CITALOPRAM HYDROBROMIDE [Concomitant]
  4. VICTRELIS [Suspect]
     Indication: PRODUCT USED FOR UNKNOWN INDICATION
     Dosage: PO
     Route: 048
  5. RIBAVIRIN [Suspect]
     Indication: PRODUCT USED FOR UNKNOWN INDICATION
  6. SEROQUEL [Concomitant]
  7. HUMULIN R [Concomitant]
  8. DIOVAN [Concomitant]
  9. NOVOLOG [Concomitant]
  10. BUPROPION HCL [Concomitant]

REACTIONS (7)
  - BLOOD GLUCOSE ABNORMAL [None]
  - EPISTAXIS [None]
  - DELIRIUM [None]
  - HALLUCINATION [None]
  - PLATELET COUNT DECREASED [None]
  - NAUSEA [None]
  - DEHYDRATION [None]
